FAERS Safety Report 6026882-8 (Version None)
Quarter: 2009Q1

REPORT INFORMATION
  Report Type: 
  Country: None (occurrence: None)
  Receive Date: 20090105
  Receipt Date: 20081030
  Transmission Date: 20090719
  Serious: Yes (Life-Threatening)
  Sender: FDA-Public Use
  Company Number: AT-NOVOPROD-266900

PATIENT
  Sex: Male
  Weight: 95 kg

DRUGS (6)
  1. NOVOSEVEN [Suspect]
     Indication: TRAUMATIC HAEMORRHAGE
     Dosage: 3 DOSES
     Route: 042
     Dates: start: 20070707, end: 20070707
  2. NOREPINEPHRINE BITARTRATE [Concomitant]
     Indication: HYPOTENSION
     Dosage: 0.126 UG/KG/MIN
     Route: 042
     Dates: start: 20070707, end: 20070712
  3. DOBUTAMINE HCL [Concomitant]
     Indication: HYPOTENSION
     Dosage: 3.9 UG/KG/MIN
     Route: 042
     Dates: start: 20070707, end: 20070709
  4. CLONIDINE [Concomitant]
     Indication: ANALGESIA
     Dosage: 120 UG/KG/MIN
     Route: 042
     Dates: start: 20070710, end: 20070723
  5. INSULIN [Suspect]
     Indication: HYPERGLYCAEMIA
     Dosage: 2 IE/H
     Route: 042
     Dates: start: 20070709, end: 20070724
  6. DALTEPARIN SODIUM [Concomitant]
     Indication: THROMBOSIS
     Dosage: 5000 IE, QD
     Route: 058
     Dates: start: 20070707

REACTIONS (3)
  - GRAFT THROMBOSIS [None]
  - PNEUMOTHORAX [None]
  - SOFT TISSUE INFECTION [None]
